FAERS Safety Report 18319369 (Version 1)
Quarter: 2020Q3

REPORT INFORMATION
  Report Type: Spontaneous
  Country: DE (occurrence: DE)
  Receive Date: 20200928
  Receipt Date: 20200928
  Transmission Date: 20201103
  Serious: Yes (Hospitalization)
  Sender: FDA-Public Use
  Company Number: DE-TEVA-2020-DE-1831797

PATIENT
  Age: 63 Year
  Sex: Female

DRUGS (10)
  1. ACETYLSALICYLSAURE [Concomitant]
     Active Substance: ASPIRIN
     Dosage: 100 MILLIGRAM DAILY;  0?1?0?0
     Route: 048
  2. ORFIRIL LONG 300MG [Suspect]
     Active Substance: VALPROIC ACID
     Dosage: 1200 MILLIGRAM DAILY; 300 MG, 2?0?2?0
     Route: 048
  3. VENLAFAXIN [Concomitant]
     Active Substance: VENLAFAXINE HYDROCHLORIDE
     Dosage: 150 MILLIGRAM DAILY; 1?0?0?0,
     Route: 048
  4. QUETIAPIN [Suspect]
     Active Substance: QUETIAPINE
     Dosage: 150 MILLIGRAM DAILY; 0?0?0?1, SUSTAINED?RELEASE TABLETS
     Route: 048
  5. AMLODIPIN [Concomitant]
     Active Substance: AMLODIPINE BESYLATE
     Dosage: 5 MILLIGRAM DAILY; 1?0?1?0
     Route: 048
  6. COLECALCIFEROL (VITAMIN D) [Concomitant]
     Dosage: 1000 IU (INTERNATIONAL UNIT) DAILY; 1?0?0?0
     Route: 048
  7. NALOXON/TILIDIN [Concomitant]
     Active Substance: NALOXONE HYDROCHLORIDE\TILIDINE HYDROCHLORIDE
     Dosage: 4|50 MG, 2X
     Route: 048
  8. TORASEMID [Concomitant]
     Active Substance: TORSEMIDE
     Dosage: 10 MILLIGRAM DAILY; 1?0?1?0
     Route: 048
  9. ORFIRIL LONG 300MG [Suspect]
     Active Substance: VALPROIC ACID
     Dosage: 250 MILLIGRAM DAILY; ORFIRIL LONG, 250 MG, 0?0?1?0
     Route: 048
  10. CANDESARTAN. [Concomitant]
     Active Substance: CANDESARTAN
     Dosage: 4 MILLIGRAM DAILY; 1?0?0?0
     Route: 048

REACTIONS (6)
  - Thrombocytopenia [Recovering/Resolving]
  - Haematoma [Recovering/Resolving]
  - Asthenia [Recovering/Resolving]
  - Dizziness [Recovering/Resolving]
  - Musculoskeletal pain [Recovering/Resolving]
  - Adverse reaction [Recovering/Resolving]
